FAERS Safety Report 19126182 (Version 38)
Quarter: 2022Q4

REPORT INFORMATION
  Report Type: Spontaneous
  Country: CA (occurrence: CA)
  Receive Date: 20210412
  Receipt Date: 20221206
  Transmission Date: 20230112
  Serious: Yes (Death, Life-Threatening, Hospitalization, Disabling, Other)
  Sender: FDA-Public Use
  Company Number: CA-BAUSCH-BL-2017-018617

PATIENT
  Age: 44 Year
  Sex: Female
  Weight: 97 kg

DRUGS (23)
  1. DICLOFENAC SODIUM [Suspect]
     Active Substance: DICLOFENAC SODIUM
     Indication: Rheumatoid arthritis
     Dosage: UNK DATES. 1.50 MG, QD; 2. TBL; 3. TBL, ORAL; 4. 50 MG; 5. 50 G.
     Route: 050
  2. DICLOFENAC POTASSIUM [Suspect]
     Active Substance: DICLOFENAC POTASSIUM
     Indication: Product used for unknown indication
     Dosage: UNK DATES; 1. TBL; 2. FILM-COATED TBL, ORAL.
     Route: 050
  3. TRIAMCINOLONE ACETONIDE [Suspect]
     Active Substance: TRIAMCINOLONE ACETONIDE
     Indication: Rheumatoid arthritis
     Route: 065
  4. HYDROCORTISONE ACETATE [Suspect]
     Active Substance: HYDROCORTISONE ACETATE
     Indication: Rheumatoid arthritis
     Dosage: UNK DATES 1. TBL ORAL; 2. ORAL.
     Route: 050
  5. HYDROCORTISONE ACETATE [Suspect]
     Active Substance: HYDROCORTISONE ACETATE
     Indication: Rheumatoid arthritis
     Dosage: UNK DATES; 1. CREAM; 2. CREAM, SC; 3. CREAM, CUTANEOUS; 4. SC; 5. TOPICAL;
     Route: 050
  6. DILTIAZEM [Suspect]
     Active Substance: DILTIAZEM
     Indication: Product used for unknown indication
     Dosage: NOT SPECIFIED
     Route: 065
  7. HYDROCORTISONE BUTYRATE [Suspect]
     Active Substance: HYDROCORTISONE BUTYRATE
     Indication: Rheumatoid arthritis
     Dosage: HYDROCORTISONE BUTYRATE: UNK DATES.1. SOLUTION, ORAL. HYDROCORTISONE : UNK DATES.1. UNK.
     Route: 050
  8. TRAMADOL HYDROCHLORIDE [Suspect]
     Active Substance: TRAMADOL HYDROCHLORIDE
     Indication: Product used for unknown indication
     Route: 065
  9. CORTISONE ACETATE [Suspect]
     Active Substance: CORTISONE ACETATE
     Indication: Rheumatoid arthritis
     Dosage: UNK DATES; 1. ORAL; 2. TBL; 3. TBL, ORAL; 3. TOPICAL, 25 MG; 4. 25 MG
     Route: 050
  10. TOPICORT [Suspect]
     Active Substance: DESOXIMETASONE
     Indication: Rheumatoid arthritis
     Dosage: UNK DATES; 1. CREAM 0.25 %, CUTANEOUS; 2. CREAM, SC; 3. CREAM, ORAL; 4. CUTANEOUS
     Route: 050
  11. DESOXIMETASONE [Suspect]
     Active Substance: DESOXIMETASONE
     Indication: Rheumatoid arthritis
     Dosage: UNK DATES; 1. CREAM, TOPICAL; 2. ORAL, OINTMENT; 3. UNK; 4. SC; 5. ORAL; 6. CREAM; 7. OINTMENT,25 MG
     Route: 050
  12. DESOXIMETASONE [Suspect]
     Active Substance: DESOXIMETASONE
     Dosage: 8. OINTMENT, UNK; 9. CREAM, 25MG; 10. 5MG; 11. I.V; 12. CUTANEOUS; 13. 25MG, QW, ORAL; 14. ORAL, QW;
     Route: 050
  13. DESOXIMETASONE [Suspect]
     Active Substance: DESOXIMETASONE
     Dosage: 15. 25MG, QW; 16. CUTANEOUS, 25 MG; 17. ORAL, 25MG
     Route: 050
  14. RAMIPRIL [Suspect]
     Active Substance: RAMIPRIL
     Indication: Product used for unknown indication
     Route: 065
  15. HYDROCORTISONE SODIUM SUCCINATE [Suspect]
     Active Substance: HYDROCORTISONE SODIUM SUCCINATE
     Indication: Rheumatoid arthritis
     Route: 065
  16. DICLOFENAC DIETHYLAMINE [Suspect]
     Active Substance: DICLOFENAC DIETHYLAMINE
     Indication: Product used for unknown indication
     Route: 065
  17. DILTIAZEM HYDROCHLORIDE [Suspect]
     Active Substance: DILTIAZEM HYDROCHLORIDE
     Indication: Product used for unknown indication
     Route: 065
  18. MINOCYCLINE HYDROCHLORIDE [Suspect]
     Active Substance: MINOCYCLINE HYDROCHLORIDE
     Indication: Product used for unknown indication
     Route: 065
  19. DICLOFENAC [Suspect]
     Active Substance: DICLOFENAC
     Indication: Product used for unknown indication
     Route: 065
  20. DICLOFENAC SODIUM [Suspect]
     Active Substance: DICLOFENAC SODIUM
     Indication: Product used for unknown indication
     Route: 065
  21. DEXAMETHASONE [Suspect]
     Active Substance: DEXAMETHASONE
     Indication: Rheumatoid arthritis
     Dosage: UNK DATE: 1. CREAM
     Route: 048
  22. HYDROCORTISONE [Suspect]
     Active Substance: HYDROCORTISONE
     Indication: Rheumatoid arthritis
     Dosage: UNK DATE: 1. ORAL, 2. CUTANEOUS,
     Route: 065
  23. MINOCYCLINE [Suspect]
     Active Substance: MINOCYCLINE HYDROCHLORIDE
     Indication: Product used for unknown indication
     Route: 065

REACTIONS (131)
  - Respiratory tract infection [Not Recovered/Not Resolved]
  - Condition aggravated [Fatal]
  - Glossodynia [Fatal]
  - Hand deformity [Fatal]
  - Pain [Fatal]
  - Pemphigus [Fatal]
  - Swelling [Fatal]
  - Systemic lupus erythematosus [Fatal]
  - Drug intolerance [Fatal]
  - Wound [Fatal]
  - Anti-cyclic citrullinated peptide antibody positive [Fatal]
  - Infusion related reaction [Fatal]
  - Rheumatoid arthritis [Fatal]
  - Blister [Not Recovered/Not Resolved]
  - Joint swelling [Fatal]
  - General physical health deterioration [Fatal]
  - Synovitis [Not Recovered/Not Resolved]
  - Live birth [Not Recovered/Not Resolved]
  - Fatigue [Fatal]
  - Alopecia [Fatal]
  - Hypersensitivity [Fatal]
  - Abdominal pain [Fatal]
  - Blood cholesterol increased [Fatal]
  - Decreased appetite [Fatal]
  - Diarrhoea [Not Recovered/Not Resolved]
  - Dizziness [Fatal]
  - Duodenal ulcer perforation [Fatal]
  - Fibromyalgia [Fatal]
  - Headache [Fatal]
  - Helicobacter infection [Fatal]
  - Hypertension [Fatal]
  - Hypoaesthesia [Fatal]
  - Liver injury [Fatal]
  - Malaise [Fatal]
  - Mobility decreased [Fatal]
  - Musculoskeletal stiffness [Fatal]
  - Nausea [Fatal]
  - Oedema [Not Recovered/Not Resolved]
  - Psoriatic arthropathy [Fatal]
  - Rheumatic fever [Fatal]
  - Sciatica [Not Recovered/Not Resolved]
  - Sinusitis [Not Recovered/Not Resolved]
  - Type 2 diabetes mellitus [Not Recovered/Not Resolved]
  - Vomiting [Not Recovered/Not Resolved]
  - Confusional state [Not Recovered/Not Resolved]
  - Folliculitis [Not Recovered/Not Resolved]
  - Gastrointestinal disorder [Not Recovered/Not Resolved]
  - Impaired healing [Not Recovered/Not Resolved]
  - Infection [Not Recovered/Not Resolved]
  - Irritable bowel syndrome [Not Recovered/Not Resolved]
  - Nasopharyngitis [Not Recovered/Not Resolved]
  - Pruritus [Not Recovered/Not Resolved]
  - Pyrexia [Not Recovered/Not Resolved]
  - Sleep disorder [Not Recovered/Not Resolved]
  - Stomatitis [Not Recovered/Not Resolved]
  - Weight increased [Not Recovered/Not Resolved]
  - Muscle injury [Not Recovered/Not Resolved]
  - Asthma [Not Recovered/Not Resolved]
  - Autoimmune disorder [Not Recovered/Not Resolved]
  - Chest pain [Not Recovered/Not Resolved]
  - Contusion [Not Recovered/Not Resolved]
  - Deep vein thrombosis postoperative [Not Recovered/Not Resolved]
  - Urticaria [Fatal]
  - Gait inability [Not Recovered/Not Resolved]
  - Lower limb fracture [Not Recovered/Not Resolved]
  - Ill-defined disorder [Not Recovered/Not Resolved]
  - Hip arthroplasty [Not Recovered/Not Resolved]
  - Knee arthroplasty [Fatal]
  - Road traffic accident [Not Recovered/Not Resolved]
  - C-reactive protein abnormal [Not Recovered/Not Resolved]
  - Osteoarthritis [Fatal]
  - Sleep disorder [Not Recovered/Not Resolved]
  - Amnesia [Not Recovered/Not Resolved]
  - Breast cancer stage III [Not Recovered/Not Resolved]
  - Delirium [Not Recovered/Not Resolved]
  - Depression [Not Recovered/Not Resolved]
  - Dislocation of vertebra [Not Recovered/Not Resolved]
  - Grip strength decreased [Not Recovered/Not Resolved]
  - Disability [Not Recovered/Not Resolved]
  - Weight decreased [Not Recovered/Not Resolved]
  - Wound infection [Not Recovered/Not Resolved]
  - Thrombocytopenia [Not Recovered/Not Resolved]
  - Dyspepsia [Not Recovered/Not Resolved]
  - Loss of personal independence in daily activities [Not Recovered/Not Resolved]
  - Migraine [Not Recovered/Not Resolved]
  - Pain in extremity [Fatal]
  - Pericarditis [Fatal]
  - Pneumonia [Fatal]
  - Pulmonary fibrosis [Not Recovered/Not Resolved]
  - Anti-cyclic citrullinated peptide antibody [Fatal]
  - X-ray abnormal [Not Recovered/Not Resolved]
  - Anxiety [Not Recovered/Not Resolved]
  - Bursitis [Not Recovered/Not Resolved]
  - Ear infection [Fatal]
  - Exostosis [Fatal]
  - Foot deformity [Fatal]
  - Laryngitis [Fatal]
  - Lupus-like syndrome [Fatal]
  - Retinitis [Fatal]
  - Hepatic cirrhosis [Fatal]
  - Red blood cell sedimentation rate increased [Fatal]
  - Bone erosion [Fatal]
  - Joint stiffness [Fatal]
  - Joint dislocation [Fatal]
  - Asthenia [Not Recovered/Not Resolved]
  - Hypercholesterolaemia [Fatal]
  - C-reactive protein increased [Fatal]
  - Crohn^s disease [Fatal]
  - Visual impairment [Fatal]
  - Oedema peripheral [Fatal]
  - Osteoporosis [Fatal]
  - Lung disorder [Not Recovered/Not Resolved]
  - Death neonatal [Not Recovered/Not Resolved]
  - Night sweats [Not Recovered/Not Resolved]
  - Tachycardia [Not Recovered/Not Resolved]
  - Dry mouth [Not Recovered/Not Resolved]
  - Drug-induced liver injury [Fatal]
  - Bronchitis [Fatal]
  - Lupus vulgaris [Fatal]
  - Psoriasis [Fatal]
  - Systemic lupus erythematosus [Fatal]
  - Underdose [Not Recovered/Not Resolved]
  - Drug ineffective [Fatal]
  - Prescribed underdose [Not Recovered/Not Resolved]
  - Contraindicated product administered [Fatal]
  - Intentional product use issue [Fatal]
  - Off label use [Fatal]
  - Prescribed overdose [Not Recovered/Not Resolved]
  - Medication error [Not Recovered/Not Resolved]
  - Exposure during pregnancy [Fatal]
  - Therapeutic product effect incomplete [Not Recovered/Not Resolved]
